FAERS Safety Report 7434947-9 (Version None)
Quarter: 2011Q2

REPORT INFORMATION
  Report Type: 
  Country: None (occurrence: None)
  Receive Date: 20110425
  Receipt Date: 20110420
  Transmission Date: 20111010
  Serious: Yes (Hospitalization)
  Sender: FDA-Public Use
  Company Number: CA-ABBOTT-11P-028-0717327-00

PATIENT
  Sex: Male
  Weight: 109.87 kg

DRUGS (10)
  1. HUMIRA [Suspect]
     Route: 058
     Dates: start: 20110404
  2. HUMIRA [Suspect]
     Indication: UVEITIS
     Route: 058
     Dates: start: 20101102, end: 20110111
  3. EYE OINTMENT (NAME UNKNOWN) [Concomitant]
     Indication: UVEITIS
     Route: 047
     Dates: start: 20100922
  4. COSOPT [Concomitant]
     Indication: UVEITIS
     Route: 047
     Dates: start: 20100922
  5. PREDNISONE [Concomitant]
     Route: 047
     Dates: start: 20100430
  6. FOLIC ACID [Concomitant]
     Indication: VITAMIN SUPPLEMENTATION
     Route: 048
     Dates: start: 20100922
  7. PROCAL-D [Concomitant]
     Indication: IMMUNE SYSTEM DISORDER
     Dosage: 400 IU/500 MG TWICE DAILY
     Route: 048
     Dates: start: 20100922
  8. METHOTREXATE [Concomitant]
     Indication: UVEITIS
     Route: 048
     Dates: start: 20100912
  9. ALPHAGAN [Concomitant]
     Indication: UVEITIS
     Route: 047
     Dates: start: 20110330
  10. PREDNISONE [Concomitant]
     Indication: UVEITIS
     Route: 048
     Dates: start: 20100922

REACTIONS (3)
  - CELLULITIS [None]
  - LYMPHADENITIS [None]
  - STAPHYLOCOCCAL ABSCESS [None]
